FAERS Safety Report 4621882-4 (Version None)
Quarter: 2005Q1

REPORT INFORMATION
  Report Type: 
  Country: None (occurrence: None)
  Receive Date: 20050329
  Receipt Date: 20050221
  Transmission Date: 20050727
  Serious: Yes (Life-Threatening)
  Sender: FDA-Public Use
  Company Number: PHBS2005JP02852

PATIENT
  Age: 37 Year
  Sex: Female

DRUGS (1)
  1. VOLTAREN [Suspect]
     Indication: PAIN IN EXTREMITY
     Dosage: 25 MG/DAY
     Route: 048
     Dates: start: 20050221, end: 20050221

REACTIONS (5)
  - BLOOD PRESSURE DECREASED [None]
  - HYPOAESTHESIA [None]
  - OXYGEN SATURATION DECREASED [None]
  - RASH [None]
  - SHOCK [None]
